FAERS Safety Report 8286406-1 (Version None)
Quarter: 2012Q2

REPORT INFORMATION
  Report Type: 
  Country: None (occurrence: None)
  Receive Date: 20120411
  Receipt Date: 20120328
  Transmission Date: 20120825
  Serious: Yes (Other)
  Sender: FDA-Public Use
  Company Number: FK201200955

PATIENT
  Age: 13 Year
  Sex: Male

DRUGS (2)
  1. METHOTREXATE [Suspect]
     Indication: ACUTE LYMPHOCYTIC LEUKAEMIA
     Dosage: 20 MG/M2, 1 IN 1 WK
  2. THIOGUANINE [Suspect]
     Indication: ACUTE LYMPHOCYTIC LEUKAEMIA
     Dosage: 50 MG/M2, 1 IN 1 D

REACTIONS (7)
  - DIARRHOEA [None]
  - ASTHENIA [None]
  - NAUSEA [None]
  - LYMPHOPENIA [None]
  - CRYPTOSPORIDIOSIS INFECTION [None]
  - WEIGHT DECREASED [None]
  - PALLOR [None]
